FAERS Safety Report 16623675 (Version 1)
Quarter: 2019Q3

REPORT INFORMATION
  Report Type: Spontaneous
  Country: BR (occurrence: BR)
  Receive Date: 20190724
  Receipt Date: 20190724
  Transmission Date: 20191004
  Serious: Yes (Other)
  Sender: FDA-Public Use
  Company Number: BR-TEVA-2019-BR-1081002

PATIENT
  Age: 77 Year
  Sex: Male
  Weight: 63 kg

DRUGS (5)
  1. VESICARE [Concomitant]
     Active Substance: SOLIFENACIN SUCCINATE
     Dosage: 5 MG ONCE A DAY
  2. AAS [Concomitant]
     Active Substance: ASPIRIN
     Dosage: 100 MG ONCE DAILY
  3. FLORINEFE [Concomitant]
     Dosage: 1 DOSAGE FORMS DAILY; 1 DOSAGE FORM= 1 TABLET
  4. PROLOPA [Concomitant]
     Active Substance: BENSERAZIDE\LEVODOPA
     Dosage: HALF TABLET EVERY 4 HOURS
  5. AZILECT [Suspect]
     Active Substance: RASAGILINE MESYLATE
     Indication: PARKINSON^S DISEASE
     Dosage: HALF TABLET A DAY
     Route: 065
     Dates: end: 20190702

REACTIONS (2)
  - Pneumonia [Recovered/Resolved]
  - Wrong technique in product usage process [Unknown]

NARRATIVE: CASE EVENT DATE: 20190621
